FAERS Safety Report 7930306-0 (Version None)
Quarter: 2011Q4

REPORT INFORMATION
  Report Type: 
  Country: None (occurrence: None)
  Receive Date: 20111117
  Receipt Date: 20111117
  Transmission Date: 20120403
  Serious: Yes (Other)
  Sender: FDA-Public Use
  Company Number: None

PATIENT

DRUGS (1)
  1. CREST W/ FLUORIDE [Suspect]
     Indication: DENTAL DISORDER PROPHYLAXIS
     Dosage: PEA-SIZED AMOUNT 2X DAILY ORAL INSIDE MOUTH-THEN SPIT OUT AND MOUTH RINSED
     Route: 048
     Dates: start: 20111017, end: 20111104

REACTIONS (5)
  - SKIN EXFOLIATION [None]
  - LIP EXFOLIATION [None]
  - STOMATITIS [None]
  - DRY MOUTH [None]
  - ORAL PAIN [None]
